FAERS Safety Report 8176903-1 (Version None)
Quarter: 2012Q1

REPORT INFORMATION
  Report Type: 
  Country: None (occurrence: None)
  Receive Date: 20120301
  Receipt Date: 20120220
  Transmission Date: 20120608
  Serious: Yes (Hospitalization, Other)
  Sender: FDA-Public Use
  Company Number: JP-PFIZER INC-2011084550

PATIENT
  Age: 74 Year
  Sex: Female
  Weight: 53 kg

DRUGS (7)
  1. CALBLOCK [Concomitant]
  2. LIPITOR [Suspect]
     Dosage: 10 MG, 2X/DAY
     Route: 048
     Dates: start: 20101220, end: 20110201
  3. LIPITOR [Suspect]
     Dosage: 10 MG, 1X/DAY
     Route: 048
  4. NIZATIDINE [Concomitant]
  5. LIPITOR [Suspect]
     Indication: LOW DENSITY LIPOPROTEIN INCREASED
     Dosage: 10 MG, 1X/DAY
     Route: 048
     Dates: start: 20101220, end: 20110201
  6. HERBAL EXTRACTS NOS [Concomitant]
  7. VALSARTAN [Concomitant]

REACTIONS (4)
  - MYALGIA [None]
  - LOW DENSITY LIPOPROTEIN INCREASED [None]
  - HEPATIC FUNCTION ABNORMAL [None]
  - CHROMATURIA [None]
